FAERS Safety Report 6827606-4 (Version None)
Quarter: 2010Q3

REPORT INFORMATION
  Report Type: 
  Country: None (occurrence: None)
  Receive Date: 20100709
  Receipt Date: 20070121
  Transmission Date: 20110219
  Serious: No
  Sender: FDA-Public Use
  Company Number: US-PFIZER INC-2007006006

PATIENT
  Sex: Female
  Weight: 65.77 kg

DRUGS (7)
  1. CHANTIX [Suspect]
     Indication: SMOKING CESSATION THERAPY
     Dates: start: 20070101
  2. LIPITOR [Concomitant]
  3. NORVASC [Concomitant]
  4. ZIAC [Concomitant]
  5. HYDROCHLOROTHIAZIDE [Concomitant]
  6. CELEBREX [Concomitant]
  7. NEXIUM [Concomitant]

REACTIONS (2)
  - ABNORMAL DREAMS [None]
  - CHEST PAIN [None]
